FAERS Safety Report 9531205 (Version 5)
Quarter: 2013Q4

REPORT INFORMATION
  Report Type: Report from Study
  Country: US (occurrence: US)
  Receive Date: 20130918
  Receipt Date: 20131203
  Transmission Date: 20140711
  Serious: Yes (Other)
  Sender: FDA-Public Use
  Company Number: US-BAYER-2013-107112

PATIENT
  Age: 79 Year
  Sex: Male

DRUGS (3)
  1. STIVARGA [Suspect]
     Indication: COLON CANCER
     Dosage: 40 MG, 4 TABLETS, DAILY
     Route: 048
     Dates: start: 20130829, end: 20130908
  2. STIVARGA [Suspect]
     Indication: COLON CANCER
     Dosage: 120 MG, (40 MG X 3) QD
     Route: 048
     Dates: start: 20131011
  3. STIVARGA [Suspect]
     Indication: COLON CANCER
     Dosage: 80 MG DAILY
     Route: 048
     Dates: start: 2013, end: 2013

REACTIONS (11)
  - Dizziness [Recovered/Resolved]
  - Retching [Recovered/Resolved]
  - Dyspepsia [Recovering/Resolving]
  - Blood pressure fluctuation [Recovered/Resolved]
  - Asthenia [Not Recovered/Not Resolved]
  - Aphagia [Recovering/Resolving]
  - Dyspnoea [Recovered/Resolved]
  - Heart rate decreased [Recovered/Resolved]
  - Hypersomnia [Not Recovered/Not Resolved]
  - Decreased appetite [Recovering/Resolving]
  - Disorientation [Recovered/Resolved]
